FAERS Safety Report 17883536 (Version 2)
Quarter: 2020Q2

REPORT INFORMATION
  Report Type: Report from Study
  Country: ES (occurrence: ES)
  Receive Date: 20200611
  Receipt Date: 20200619
  Transmission Date: 20200714
  Serious: Yes (Death, Other)
  Sender: FDA-Public Use
  Company Number: ES-TEVA-2020-ES-1246786

PATIENT
  Age: 79 Year
  Sex: Male
  Weight: 85.5 kg

DRUGS (4)
  1. CEFOTAXIMA (3840A) [Suspect]
     Active Substance: CEFOTAXIME SODIUM
     Indication: COVID-19
     Route: 042
     Dates: start: 20200312, end: 20200317
  2. IVEMEND 150 MG POLVO PARA SOLUCION PARA PERFUSION, 1 VIAL [Suspect]
     Active Substance: FOSAPREPITANT DIMEGLUMINE
     Indication: COVID-19
     Dosage: 2 DOSAGE FORMS
     Route: 048
     Dates: start: 20200311, end: 20200320
  3. AZITROMICINA (7019A) [Suspect]
     Active Substance: AZITHROMYCIN
     Indication: COVID-19
     Dosage: 500 MG
     Route: 048
     Dates: start: 20200311, end: 20200319
  4. INTERFERON BETA-1B (2305OD) [Suspect]
     Active Substance: INTERFERON BETA-1B
     Indication: COVID-19
     Dosage: 30 MG
     Route: 058
     Dates: start: 20200311, end: 20200311

REACTIONS (1)
  - Hyperbilirubinaemia [Not Recovered/Not Resolved]

NARRATIVE: CASE EVENT DATE: 20200316
